FAERS Safety Report 7303477-7 (Version None)
Quarter: 2011Q1

REPORT INFORMATION
  Report Type: 
  Country: None (occurrence: None)
  Receive Date: 20110221
  Receipt Date: 20101206
  Transmission Date: 20110831
  Serious: Yes (Other)
  Sender: FDA-Public Use
  Company Number: US-BAYER-201040215NA

PATIENT
  Sex: Female
  Weight: 71.202 kg

DRUGS (1)
  1. MIRENA [Suspect]
     Indication: CONTRACEPTION
     Dosage: CONTINUOUS
     Route: 015
     Dates: start: 20080624, end: 20101105

REACTIONS (2)
  - GENITAL HAEMORRHAGE [None]
  - DEVICE DISLOCATION [None]
